FAERS Safety Report 9416853 (Version 2)
Quarter: 2013Q4

REPORT INFORMATION
  Report Type: Spontaneous
  Country: FR (occurrence: FR)
  Receive Date: 20130724
  Receipt Date: 20131016
  Transmission Date: 20140711
  Serious: Yes (Death)
  Sender: FDA-Public Use
  Company Number: FR-UCBSA-092535

PATIENT
  Age: 68 Year
  Sex: Male

DRUGS (2)
  1. VIMPAT [Suspect]
     Dosage: UNKNOWN DOSE
     Dates: start: 201304
  2. KEPPRA [Suspect]
     Dosage: UNKNOWN DOSE

REACTIONS (2)
  - Death [Fatal]
  - Mental disorder [Unknown]
